FAERS Safety Report 21984638 (Version 1)
Quarter: 2023Q1

REPORT INFORMATION
  Report Type: Spontaneous
  Country: US (occurrence: None)
  Receive Date: 20230209
  Receipt Date: 20230209
  Transmission Date: 20230417
  Serious: Yes (Hospitalization)
  Sender: FDA-Public Use
  Company Number: None

PATIENT
  Age: 48 Year
  Sex: Male

DRUGS (1)
  1. DIMETHYL FUMARATE [Suspect]
     Active Substance: DIMETHYL FUMARATE
     Dosage: FREQUENCY : TWICE A DAY;?
     Route: 048

REACTIONS (6)
  - Chest pain [None]
  - Muscle spasms [None]
  - Muscle rupture [None]
  - Blood pressure increased [None]
  - Muscular weakness [None]
  - Multiple sclerosis [None]

NARRATIVE: CASE EVENT DATE: 20230109
